FAERS Safety Report 9555943 (Version 1)
Quarter: 2013Q3

REPORT INFORMATION
  Report Type: Spontaneous
  Country: US (occurrence: None)
  Receive Date: 20130815
  Receipt Date: 20130815
  Transmission Date: 20140515
  Serious: Yes (Hospitalization, Other)
  Sender: FDA-Public Use
  Company Number: ADR-2013-00685

PATIENT
  Sex: Male

DRUGS (2)
  1. BALCLOFEN INTRATHECAL [Suspect]
     Indication: MUSCLE SPASTICITY
  2. BALCLOFEN INTRATHECAL [Suspect]
     Indication: SPINAL CORD INJURY

REACTIONS (4)
  - Muscle spasticity [None]
  - Spinal cord injury [None]
  - Wound infection [None]
  - Unevaluable event [None]
